FAERS Safety Report 19221118 (Version 7)
Quarter: 2022Q3

REPORT INFORMATION
  Report Type: Report from Study
  Country: AU (occurrence: AU)
  Receive Date: 20210506
  Receipt Date: 20220823
  Transmission Date: 20221026
  Serious: Yes (Hospitalization)
  Sender: FDA-Public Use
  Company Number: NVSC2021AU096563

PATIENT
  Age: 61 Year
  Sex: Male
  Weight: 62.4 kg

DRUGS (28)
  1. SIPONIMOD [Suspect]
     Active Substance: SIPONIMOD
     Indication: Secondary progressive multiple sclerosis
     Dosage: UNK
     Route: 048
     Dates: start: 20141017, end: 20160313
  2. DALFAMPRIDINE [Concomitant]
     Active Substance: DALFAMPRIDINE
     Indication: Multiple sclerosis
     Dosage: 10 MG, BID
     Route: 048
     Dates: start: 20140106
  3. CHOLECALCIFEROL [Concomitant]
     Active Substance: CHOLECALCIFEROL
     Indication: Vitamin D decreased
     Dosage: 2 OTHER, QD
     Route: 048
     Dates: start: 20150317
  4. CRESTOR [Concomitant]
     Active Substance: ROSUVASTATIN CALCIUM
     Indication: Dyslipidaemia
     Dosage: 5 MG, QD
     Route: 048
     Dates: start: 20160201, end: 20210426
  5. CRESTOR [Concomitant]
     Active Substance: ROSUVASTATIN CALCIUM
     Dosage: 10 MG
     Route: 048
     Dates: start: 20210427
  6. CODRAL [Concomitant]
     Indication: Viral infection
     Dosage: 2 OTHER, ONCE
     Route: 048
     Dates: start: 20170426, end: 20170427
  7. NALOXONE HYDROCHLORIDE\OXYCODONE HYDROCHLORIDE [Concomitant]
     Active Substance: NALOXONE HYDROCHLORIDE\OXYCODONE HYDROCHLORIDE
     Indication: Hip fracture
     Dosage: 3 UNK, OTHER
     Route: 048
     Dates: start: 20170515, end: 20170516
  8. OXYCODONE HYDROCHLORIDE [Concomitant]
     Active Substance: OXYCODONE HYDROCHLORIDE
     Indication: Hip fracture
     Dosage: 5 MG, PRN
     Route: 048
     Dates: start: 20170515, end: 20170515
  9. FENTANYL [Concomitant]
     Active Substance: FENTANYL
     Indication: Fracture pain
     Dosage: 20 UG, PRN
     Route: 042
     Dates: start: 20170515, end: 20170515
  10. CEFAZOLIN [Concomitant]
     Active Substance: CEFAZOLIN
     Indication: Hip fracture
     Dosage: 2 G, TID
     Route: 042
     Dates: start: 20170515, end: 20170516
  11. ACETAMINOPHEN [Concomitant]
     Active Substance: ACETAMINOPHEN
     Indication: Hip fracture
     Dosage: 1 G, QID
     Route: 042
     Dates: start: 20170515, end: 20170517
  12. HEPARIN [Concomitant]
     Active Substance: HEPARIN SODIUM
     Indication: Hip fracture
     Dosage: 1 ML, BID
     Route: 058
     Dates: start: 20170515, end: 20170517
  13. IBUPROFEN [Concomitant]
     Active Substance: IBUPROFEN
     Indication: Fracture pain
     Dosage: 40 MG, TID
     Route: 048
     Dates: start: 20170516, end: 20170517
  14. ZOLEDRONIC ACID [Concomitant]
     Active Substance: ZOLEDRONIC ACID
     Indication: Osteoporosis
     Dosage: 4 MG, ONCE/SINGLE
     Route: 042
     Dates: start: 20170818, end: 20170818
  15. ACTONEL [Concomitant]
     Active Substance: RISEDRONATE SODIUM
     Indication: Osteoporosis
     Dosage: 150 MG, QMO
     Route: 048
     Dates: start: 20180803
  16. PERINDOPRIL [Concomitant]
     Active Substance: PERINDOPRIL
     Indication: Hypertension
     Dosage: 5 MG, QD
     Route: 048
     Dates: start: 20201001
  17. ENOXAPARIN SODIUM [Concomitant]
     Active Substance: ENOXAPARIN SODIUM
     Indication: Prophylaxis
     Dosage: 40 MG, QD
     Route: 058
     Dates: start: 20210427, end: 20210604
  18. METHYLPREDNISOLONE [Concomitant]
     Active Substance: METHYLPREDNISOLONE
     Indication: Multiple sclerosis
     Dosage: 1000 MG, STAT
     Route: 042
     Dates: start: 20210428, end: 20210428
  19. RAMIPRIL [Concomitant]
     Active Substance: RAMIPRIL
     Indication: Hypertension
     Dosage: 5 MG, QD
     Route: 048
     Dates: start: 20210427
  20. DOCUSATE [Concomitant]
     Active Substance: DOCUSATE
     Indication: Constipation
     Dosage: 2 DF, PRN
     Route: 048
     Dates: start: 20210430
  21. DOCUSATE [Concomitant]
     Active Substance: DOCUSATE
     Dosage: 1 DF, PRN
     Route: 048
     Dates: start: 20210516, end: 20210521
  22. MOVICOL [Concomitant]
     Active Substance: POLYETHYLENE GLYCOL 3350\POTASSIUM CHLORIDE\SODIUM BICARBONATE\SODIUM CHLORIDE
     Indication: Constipation
     Dosage: 1 SACHET BID
     Route: 048
     Dates: start: 20210510, end: 20210514
  23. MOVICOL [Concomitant]
     Active Substance: POLYETHYLENE GLYCOL 3350\POTASSIUM CHLORIDE\SODIUM BICARBONATE\SODIUM CHLORIDE
     Dosage: 1 SACHET PRN
     Route: 048
     Dates: start: 20210517, end: 20210604
  24. MAGNESIUM ASPARTATE [Concomitant]
     Active Substance: MAGNESIUM ASPARTATE
     Indication: General physical condition
     Dosage: 1000 MG, BID
     Route: 048
     Dates: start: 20210517
  25. CHOLECALCIFEROL [Concomitant]
     Active Substance: CHOLECALCIFEROL
     Indication: Osteoporosis
     Dosage: 25 UG, QD
     Route: 048
     Dates: start: 20210427, end: 20210521
  26. METOCLOPRAMIDE [Concomitant]
     Active Substance: METOCLOPRAMIDE
     Indication: Vomiting
     Dosage: 10 MG, PRN
     Route: 042
     Dates: start: 20210517, end: 20210521
  27. VITAMINS [Concomitant]
     Active Substance: VITAMINS
     Indication: General physical condition
     Dosage: 1 DF, QD
     Route: 048
     Dates: start: 20210504, end: 20210521
  28. NATALIZUMAB [Concomitant]
     Active Substance: NATALIZUMAB
     Indication: Multiple sclerosis
     Dosage: 300 MG, Q4W
     Route: 042
     Dates: start: 20210519

REACTIONS (1)
  - Meningitis cryptococcal [Recovered/Resolved with Sequelae]

NARRATIVE: CASE EVENT DATE: 20210426
